FAERS Safety Report 13912039 (Version 1)
Quarter: 2017Q3

REPORT INFORMATION
  Report Type: Spontaneous
  Country: US (occurrence: US)
  Receive Date: 20170828
  Receipt Date: 20170828
  Transmission Date: 20171127
  Serious: Yes (Hospitalization)
  Sender: FDA-Public Use
  Company Number: US-ROCHE-GNE303389

PATIENT
  Age: 5 Year
  Sex: Male

DRUGS (1)
  1. NUTROPIN AQ [Suspect]
     Active Substance: SOMATROPIN
     Indication: GROWTH HORMONE DEFICIENCY
     Dosage: 0.6 MG, QD
     Route: 058
     Dates: start: 20100601

REACTIONS (4)
  - Overdose [None]
  - Medication error [None]
  - Hyperglycaemia [Recovered/Resolved with Sequelae]
  - Injection site pain [None]

NARRATIVE: CASE EVENT DATE: 20100621
